FAERS Safety Report 9471042 (Version 2)
Quarter: 2013Q3

REPORT INFORMATION
  Report Type: Spontaneous
  Country: US (occurrence: US)
  Receive Date: 20130822
  Receipt Date: 20130906
  Transmission Date: 20140515
  Serious: No
  Sender: FDA-Public Use
  Company Number: US-BAYER-2013-100943

PATIENT
  Age: 50 Year
  Sex: Female

DRUGS (1)
  1. CLIMARA [Suspect]
     Indication: OOPHORECTOMY BILATERAL
     Dosage: UNK
     Route: 062
     Dates: start: 1997

REACTIONS (2)
  - Application site irritation [None]
  - Product adhesion issue [None]
